FAERS Safety Report 4392765-2 (Version None)
Quarter: 2004Q3

REPORT INFORMATION
  Report Type: 
  Country: None (occurrence: None)
  Receive Date: 20040702
  Receipt Date: 20040623
  Transmission Date: 20050211
  Serious: Yes (Death, Life-Threatening, Hospitalization, Disabling)
  Sender: FDA-Public Use
  Company Number: 2004PK00499

PATIENT
  Age: 61 Year
  Sex: Female
  Weight: 109 kg

DRUGS (3)
  1. FASLODEX [Suspect]
     Indication: BREAST CANCER
     Dosage: 250 MG MONTH IM
     Route: 030
     Dates: start: 20040213, end: 20040316
  2. FASLODEX [Suspect]
     Indication: METASTASES TO BONE
     Dosage: 250 MG MONTH IM
     Route: 030
     Dates: start: 20040213, end: 20040316
  3. FASLODEX [Suspect]
     Indication: METASTASES TO LIVER
     Dosage: 250 MG MONTH IM
     Route: 030
     Dates: start: 20040213, end: 20040316

REACTIONS (5)
  - COMA [None]
  - DYSPNOEA [None]
  - PULMONARY EMBOLISM [None]
  - RENAL FAILURE [None]
  - RIGHT VENTRICULAR FAILURE [None]
